FAERS Safety Report 9019265 (Version 1)
Quarter: 2013Q1

REPORT INFORMATION
  Report Type: Spontaneous
  Country: US (occurrence: US)
  Receive Date: 20130118
  Receipt Date: 20130118
  Transmission Date: 20140127
  Serious: Yes (Other)
  Sender: FDA-Public Use
  Company Number: US-ELI_LILLY_AND_COMPANY-US201301002780

PATIENT
  Age: 90 None
  Sex: Female

DRUGS (2)
  1. FORTEO [Suspect]
     Indication: OSTEOPOROSIS
     Dosage: UNK, QD
  2. PRILOSEC [Concomitant]

REACTIONS (6)
  - Spinal fracture [Unknown]
  - Spinal fracture [Unknown]
  - Pain [Unknown]
  - Dyspepsia [Unknown]
  - Irritability [Unknown]
  - Asthenia [Unknown]
